FAERS Safety Report 12640560 (Version 5)
Quarter: 2017Q1

REPORT INFORMATION
  Report Type: Spontaneous
  Country: BR (occurrence: BR)
  Receive Date: 20160810
  Receipt Date: 20170302
  Transmission Date: 20170428
  Serious: Yes (Other)
  Sender: FDA-Public Use
  Company Number: BR-PFIZER INC-2016380906

PATIENT
  Age: 76 Year
  Sex: Male

DRUGS (2)
  1. CAVERJECT [Suspect]
     Active Substance: ALPROSTADIL
     Dosage: 20 UG, UNK
     Dates: start: 2015
  2. CAVERJECT [Suspect]
     Active Substance: ALPROSTADIL
     Dosage: UNK

REACTIONS (6)
  - Foreign body [Recovered/Resolved]
  - Product label issue [Recovered/Resolved]
  - Fear [Unknown]
  - Emotional distress [Unknown]
  - Product quality issue [Recovered/Resolved]
  - Needle issue [Recovered/Resolved]

NARRATIVE: CASE EVENT DATE: 20160731
